FAERS Safety Report 13073840 (Version 1)
Quarter: 2016Q4

REPORT INFORMATION
  Report Type: Spontaneous
  Country: GB (occurrence: GB)
  Receive Date: 20161229
  Receipt Date: 20161229
  Transmission Date: 20170207
  Serious: Yes (Hospitalization)
  Sender: FDA-Public Use
  Company Number: GB-ASTRAZENECA-2016SF36485

PATIENT
  Age: 81 Year
  Sex: Female

DRUGS (5)
  1. OMEPRAZOLE. [Suspect]
     Active Substance: OMEPRAZOLE
     Dosage: 20 MG EVERY DAY IN THE MORNING. LONGSTANDING.
     Route: 048
     Dates: start: 201512
  2. DIAZEPAM. [Suspect]
     Active Substance: DIAZEPAM
     Dosage: 2 MG IN THE MORNING. LONGSTANDING.
     Route: 048
     Dates: start: 201512
  3. FLUPENTIXOL [Suspect]
     Active Substance: FLUPENTIXOL
     Dosage: 500 UG EVERY DAY IN THE MORNING.
     Route: 048
     Dates: start: 201512
  4. FLUPENTIXOL [Suspect]
     Active Substance: FLUPENTIXOL
     Dosage: 500 UG IN THE EVENING. LONGSTANDING. AS REQUIRED
     Route: 048
     Dates: start: 201606
  5. MIRTAZAPINE. [Suspect]
     Active Substance: MIRTAZAPINE
     Dosage: 15 MG EVERY DAY AT NIGHT. LONGSTANDING.
     Route: 065
     Dates: start: 201512

REACTIONS (6)
  - Liver function test abnormal [Not Recovered/Not Resolved]
  - Vomiting [Unknown]
  - Jaundice [Unknown]
  - Malaise [Unknown]
  - Nausea [Unknown]
  - Decreased appetite [Unknown]

NARRATIVE: CASE EVENT DATE: 201611
